FAERS Safety Report 13909132 (Version 1)
Quarter: 2017Q3

REPORT INFORMATION
  Report Type: Spontaneous
  Country: US (occurrence: US)
  Receive Date: 20170828
  Receipt Date: 20170828
  Transmission Date: 20171127
  Serious: No
  Sender: FDA-Public Use
  Company Number: US-ASTRAZENECA-2017SE86533

PATIENT
  Sex: Female
  Weight: 56.7 kg

DRUGS (6)
  1. METHADONE [Concomitant]
     Active Substance: METHADONE HYDROCHLORIDE
     Dosage: A LOT OF SUPPLEMENTS
  2. MOVANTIK [Suspect]
     Active Substance: NALOXEGOL OXALATE
     Indication: CONSTIPATION
     Route: 048
     Dates: start: 20170713, end: 20170807
  3. FLUCONAZOLE. [Concomitant]
     Active Substance: FLUCONAZOLE
     Indication: PARASITE ALLERGY
     Route: 048
     Dates: start: 20170713
  4. MOVANTIK [Suspect]
     Active Substance: NALOXEGOL OXALATE
     Indication: DRUG WITHDRAWAL MAINTENANCE THERAPY
     Route: 048
     Dates: start: 20170713, end: 20170807
  5. BEG [Concomitant]
     Indication: MYCOTIC ALLERGY
     Dosage: TWO TIMES A DAY
     Route: 045
     Dates: start: 20170713
  6. METRONIDAZOLE. [Concomitant]
     Active Substance: METRONIDAZOLE
     Indication: PARASITE ALLERGY
     Route: 061
     Dates: start: 20170713

REACTIONS (7)
  - Withdrawal syndrome [Unknown]
  - Decreased appetite [Unknown]
  - Diarrhoea [Unknown]
  - Arthralgia [Unknown]
  - Feeling abnormal [Unknown]
  - Depression [Unknown]
  - Rhinorrhoea [Unknown]
